FAERS Safety Report 8151062-X (Version None)
Quarter: 2012Q1

REPORT INFORMATION
  Report Type: 
  Country: None (occurrence: None)
  Receive Date: 20120220
  Receipt Date: 20120210
  Transmission Date: 20120608
  Serious: Yes (Hospitalization, Disabling)
  Sender: FDA-Public Use
  Company Number: US-MERCK-1103USA01911

PATIENT
  Age: 59 Year
  Sex: Female
  Weight: 60 kg

DRUGS (13)
  1. VITAMIN D (UNSPECIFIED) [Concomitant]
     Route: 065
     Dates: start: 19980101, end: 20100101
  2. FOSAMAX PLUS D [Suspect]
     Route: 048
     Dates: start: 20070321, end: 20071201
  3. CALCIUM CITRATE [Concomitant]
     Route: 065
     Dates: start: 19980101, end: 20100101
  4. FOSAMAX [Suspect]
     Indication: OSTEOPOROSIS
     Route: 048
     Dates: start: 19980801, end: 20050301
  5. FOSAMAX [Suspect]
     Route: 048
     Dates: start: 20080201, end: 20090801
  6. MULTI-VITAMINS [Concomitant]
     Route: 065
     Dates: start: 20020101
  7. FOSAMAX [Suspect]
     Route: 048
     Dates: start: 20050301, end: 20060201
  8. MAGNESIUM CITRATE [Concomitant]
     Route: 065
     Dates: start: 20020101
  9. PREMARIN [Concomitant]
     Route: 065
  10. HORMONES (UNSPECIFIED) [Concomitant]
     Route: 065
     Dates: start: 19960101, end: 20020101
  11. FOSAMAX PLUS D [Suspect]
     Indication: OSTEOPOROSIS
     Route: 048
     Dates: start: 20060201, end: 20060401
  12. BONIVA [Concomitant]
     Indication: OSTEOPOROSIS
     Route: 048
     Dates: start: 20060501, end: 20070321
  13. PRINZIDE [Concomitant]
     Route: 065

REACTIONS (38)
  - LOW TURNOVER OSTEOPATHY [None]
  - STRESS FRACTURE [None]
  - DEVICE BREAKAGE [None]
  - RALES [None]
  - OSTEOPENIA [None]
  - GINGIVAL RECESSION [None]
  - PAIN [None]
  - NAUSEA [None]
  - MIGRAINE [None]
  - MUSCULOSKELETAL STIFFNESS [None]
  - ELECTROCARDIOGRAM ST-T CHANGE [None]
  - DIVERTICULUM [None]
  - OSTEOPOROSIS [None]
  - ARTERIOVENOUS MALFORMATION [None]
  - GAIT DISTURBANCE [None]
  - HYPERKERATOSIS [None]
  - PELVIC ADHESIONS [None]
  - BLOOD PARATHYROID HORMONE DECREASED [None]
  - HAEMORRHOIDS [None]
  - VOMITING [None]
  - TOOTH FRACTURE [None]
  - TYPE 2 DIABETES MELLITUS [None]
  - ARTERIOVENOUS FISTULA [None]
  - PRESYNCOPE [None]
  - ENDOTRACHEAL INTUBATION COMPLICATION [None]
  - HYPERCALCIURIA [None]
  - BLOOD PARATHYROID HORMONE INCREASED [None]
  - TENDONITIS [None]
  - ROTATOR CUFF SYNDROME [None]
  - HYPERPARATHYROIDISM [None]
  - FEMUR FRACTURE [None]
  - IMPLANT SITE EFFUSION [None]
  - SPINAL COMPRESSION FRACTURE [None]
  - PYREXIA [None]
  - MUSCULOSKELETAL PAIN [None]
  - RADIUS FRACTURE [None]
  - SINUS BRADYCARDIA [None]
  - BONE DISORDER [None]
